FAERS Safety Report 9256957 (Version 2)
Quarter: 2013Q2

REPORT INFORMATION
  Report Type: Spontaneous
  Country: US (occurrence: None)
  Receive Date: 20130423
  Receipt Date: 20130510
  Transmission Date: 20140414
  Serious: Yes (Hospitalization, Other)
  Sender: FDA-Public Use
  Company Number: JPI-P-031290

PATIENT
  Age: 35 Year
  Sex: Male
  Weight: 95.26 kg

DRUGS (4)
  1. XYREM [Suspect]
     Indication: NARCOLEPSY
     Dosage: (2.25 GM, 2 IN 1 D)
     Route: 048
     Dates: start: 20101007, end: 20110320
  2. RITALIN [Concomitant]
  3. NAPROXEN [Concomitant]
  4. IBUPROFEN [Concomitant]

REACTIONS (3)
  - Arnold-Chiari malformation [None]
  - Occipital neuralgia [None]
  - Headache [None]
